FAERS Safety Report 9139038 (Version 1)
Quarter: 2013Q1

REPORT INFORMATION
  Report Type: Spontaneous
  Country: US (occurrence: None)
  Receive Date: 20130205
  Receipt Date: 20130205
  Transmission Date: 20140127
  Serious: Yes (Death)
  Sender: FDA-Public Use
  Company Number: DEP_00836_00836_2013

PATIENT
  Age: 65 Year
  Sex: Male

DRUGS (9)
  1. GABAPENTIN [Suspect]
     Indication: PRODUCT USED FOR UNKNOWN INDICATION
  2. METOPROLOL [Suspect]
     Route: 048
  3. CALCIUM CHANNEL BLOCKERS [Suspect]
     Route: 048
  4. QUETIAPINE [Suspect]
     Route: 048
  5. ESCITALOPRAM [Suspect]
     Route: 048
  6. ACETAMINOPHEN W/CODEINE [Suspect]
     Route: 048
  7. BENZODIAZEPINE DERIVATIVES [Suspect]
     Route: 048
  8. ESZOPICLONE [Suspect]
     Route: 048
  9. SIMVASTATIN [Suspect]
     Route: 048

REACTIONS (2)
  - Poisoning [None]
  - Completed suicide [None]
